FAERS Safety Report 19845902 (Version 1)
Quarter: 2021Q3

REPORT INFORMATION
  Report Type: Spontaneous
  Country: SI (occurrence: SI)
  Receive Date: 20210916
  Receipt Date: 20210916
  Transmission Date: 20211014
  Serious: Yes (Other)
  Sender: FDA-Public Use
  Company Number: SI-EMD SERONO-9265392

PATIENT
  Age: 21 Year
  Sex: Female

DRUGS (4)
  1. MAVENCLAD [Suspect]
     Active Substance: CLADRIBINE
     Dosage: CYCLE TWO PART ONE THERAPY.
     Dates: start: 202101
  2. MAVENCLAD [Suspect]
     Active Substance: CLADRIBINE
     Indication: MULTIPLE SCLEROSIS
     Dosage: CYCLE ONE PART ONE THERAPY.
     Dates: start: 202001
  3. MAVENCLAD [Suspect]
     Active Substance: CLADRIBINE
     Dosage: CYCLE ONE PART TWO THERAPY.
     Dates: start: 202002
  4. MAVENCLAD [Suspect]
     Active Substance: CLADRIBINE
     Dosage: CYCLE TWO PART TWO THERAPY.
     Dates: start: 202102

REACTIONS (1)
  - Hypothyroidism [Unknown]

NARRATIVE: CASE EVENT DATE: 202101
